FAERS Safety Report 7806370-6 (Version None)
Quarter: 2011Q4

REPORT INFORMATION
  Report Type: 
  Country: None (occurrence: None)
  Receive Date: 20111007
  Receipt Date: 20111007
  Transmission Date: 20120403
  Serious: Yes (Other)
  Sender: FDA-Public Use
  Company Number: None

PATIENT
  Sex: Female
  Weight: 61.2356 kg

DRUGS (2)
  1. LIDOCAINE [Suspect]
     Indication: ANAESTHESIA PROCEDURE
     Dates: start: 20081114
  2. 7% TETRACAINE TOPICAL ANESTHETIC 3 HOURS ON FACE TOPICAL ANESTHETIC AN [Suspect]
     Indication: PREMEDICATION
     Dosage: 7% TETRACAINE TOPICAL ANESTHETIC
     Route: 061

REACTIONS (1)
  - SCAR [None]
